FAERS Safety Report 15671199 (Version 1)
Quarter: 2018Q4

REPORT INFORMATION
  Report Type: Spontaneous
  Country: FR (occurrence: FR)
  Receive Date: 20181129
  Receipt Date: 20181129
  Transmission Date: 20190205
  Serious: Yes (Life-Threatening, Hospitalization)
  Sender: FDA-Public Use
  Company Number: FR-TEVA-2018-FR-979705

PATIENT
  Age: 73 Year
  Sex: Male
  Weight: 82.7 kg

DRUGS (3)
  1. AVODART [Suspect]
     Active Substance: DUTASTERIDE
     Indication: PRODUCT USED FOR UNKNOWN INDICATION
     Dosage: .5 MILLIGRAM DAILY;
     Route: 048
     Dates: end: 201809
  2. BACLOFENE [Concomitant]
     Active Substance: BACLOFEN
     Route: 048
  3. TAMSULOSINE [Suspect]
     Active Substance: TAMSULOSIN HYDROCHLORIDE
     Indication: PRODUCT USED FOR UNKNOWN INDICATION
     Dosage: .4 MILLIGRAM DAILY;
     Route: 048
     Dates: start: 2014, end: 201809

REACTIONS (3)
  - Loss of consciousness [Recovering/Resolving]
  - Malaise [Recovering/Resolving]
  - Orthostatic hypotension [Recovering/Resolving]

NARRATIVE: CASE EVENT DATE: 20180916
